FAERS Safety Report 16065057 (Version 1)
Quarter: 2019Q1

REPORT INFORMATION
  Report Type: Report from Study
  Country: DE (occurrence: DE)
  Receive Date: 20190313
  Receipt Date: 20190313
  Transmission Date: 20190418
  Serious: Yes (Hospitalization)
  Sender: FDA-Public Use
  Company Number: DE-ROCHE-2280060

PATIENT
  Sex: Female
  Weight: 60 kg

DRUGS (4)
  1. HYLO COMOD [Concomitant]
     Active Substance: HYALURONATE SODIUM
     Indication: DRY EYE
     Route: 065
  2. RANIBIZUMAB. [Suspect]
     Active Substance: RANIBIZUMAB
     Indication: MACULAR OEDEMA
     Route: 031
     Dates: start: 20180503
  3. RANIBIZUMAB. [Suspect]
     Active Substance: RANIBIZUMAB
     Indication: RETINAL VEIN OCCLUSION
     Route: 031
     Dates: start: 20180605
  4. RANIBIZUMAB. [Suspect]
     Active Substance: RANIBIZUMAB
     Route: 031
     Dates: start: 20180704

REACTIONS (1)
  - Cerebrovascular accident [Not Recovered/Not Resolved]

NARRATIVE: CASE EVENT DATE: 20190228
